FAERS Safety Report 7291620-8 (Version None)
Quarter: 2011Q1

REPORT INFORMATION
  Report Type: 
  Country: None (occurrence: None)
  Receive Date: 20110214
  Receipt Date: 20110201
  Transmission Date: 20110831
  Serious: Yes (Hospitalization)
  Sender: FDA-Public Use
  Company Number: AT-ELI_LILLY_AND_COMPANY-AT201102001252

PATIENT
  Sex: Male
  Weight: 82 kg

DRUGS (1)
  1. EFFIENT [Suspect]
     Indication: ISCHAEMIA
     Dosage: UNK, UNKNOWN
     Route: 065
     Dates: start: 20100709

REACTIONS (6)
  - CHEST PAIN [None]
  - HYPOCHROMIC ANAEMIA [None]
  - PAIN IN EXTREMITY [None]
  - ASTHENIA [None]
  - EPISTAXIS [None]
  - GASTRITIS EROSIVE [None]
